FAERS Safety Report 6544772-9 (Version None)
Quarter: 2010Q1

REPORT INFORMATION
  Report Type: 
  Country: None (occurrence: None)
  Receive Date: 20100120
  Receipt Date: 20100120
  Transmission Date: 20100710
  Serious: Yes (Life-Threatening)
  Sender: FDA-Public Use
  Company Number: None

PATIENT
  Age: 15 Year
  Sex: Male
  Weight: 49.8957 kg

DRUGS (2)
  1. ABILIFY [Suspect]
     Indication: DEPRESSION
     Dosage: 5MG ONCE DAILY PO
     Route: 048
     Dates: start: 20100106, end: 20100116
  2. PROZAC [Suspect]
     Indication: DEPRESSION
     Dosage: 60MG ONCE DAILY PO
     Route: 048

REACTIONS (12)
  - AMNESIA [None]
  - ANGER [None]
  - DYSARTHRIA [None]
  - GLOSSODYNIA [None]
  - HALLUCINATION, AUDITORY [None]
  - HOMICIDAL IDEATION [None]
  - IMPULSIVE BEHAVIOUR [None]
  - MUSCLE TWITCHING [None]
  - POTENTIATING DRUG INTERACTION [None]
  - SUICIDAL IDEATION [None]
  - SWOLLEN TONGUE [None]
  - VISUAL IMPAIRMENT [None]
